FAERS Safety Report 6978198-0 (Version None)
Quarter: 2010Q3

REPORT INFORMATION
  Report Type: 
  Country: None (occurrence: None)
  Receive Date: 20100913
  Receipt Date: 20100907
  Transmission Date: 20110219
  Serious: Yes (Death, Hospitalization)
  Sender: FDA-Public Use
  Company Number: US-KINGPHARMUSA00001-K201001131

PATIENT
  Age: 74 Year
  Sex: Female

DRUGS (1)
  1. AVINZA [Suspect]
     Dosage: UNK

REACTIONS (5)
  - DRUG DISPENSING ERROR [None]
  - FALL [None]
  - LOSS OF CONSCIOUSNESS [None]
  - PNEUMONIA [None]
  - RESPIRATORY DEPRESSION [None]
